FAERS Safety Report 4771621-1 (Version None)
Quarter: 2005Q3

REPORT INFORMATION
  Report Type: 
  Country: None (occurrence: None)
  Receive Date: 20050916
  Receipt Date: 20050905
  Transmission Date: 20060218
  Serious: Yes (Hospitalization, Other)
  Sender: FDA-Public Use
  Company Number: IT-JNJFOC-20031203922

PATIENT
  Age: 18 Year

DRUGS (4)
  1. INFLIXIMAB [Suspect]
     Indication: CROHN'S DISEASE
     Route: 042
  2. AZATHIOPRINE [Concomitant]
  3. PREDNISONE [Concomitant]
  4. MESALAMINE [Concomitant]

REACTIONS (2)
  - LUPUS-LIKE SYNDROME [None]
  - SYSTEMIC LUPUS ERYTHEMATOSUS [None]
